FAERS Safety Report 8156690-3 (Version None)
Quarter: 2012Q1

REPORT INFORMATION
  Report Type: 
  Country: None (occurrence: None)
  Receive Date: 20120222
  Receipt Date: 20120213
  Transmission Date: 20120608
  Serious: Yes (Other)
  Sender: FDA-Public Use
  Company Number: CA-B.I. PHARMACEUTICALS,INC./RIDGEFIELD-2012-CN-00251CN

PATIENT
  Age: 54 Year
  Sex: Male

DRUGS (20)
  1. VIDEX [Suspect]
     Route: 065
  2. ZIDOVUDINE [Suspect]
     Route: 065
  3. VIRAMUNE [Suspect]
     Route: 065
  4. VIRAMUNE [Suspect]
     Route: 065
  5. LAMIVUDINE [Suspect]
     Route: 065
  6. SAQUINAVIR [Suspect]
     Route: 065
  7. REYATAZ [Suspect]
     Route: 065
  8. CRIXIVAN [Suspect]
     Route: 048
  9. FUZEON [Suspect]
     Route: 058
  10. LAMIVUDINE [Suspect]
     Route: 065
  11. RITONAVIR [Suspect]
     Route: 065
  12. KALETRA [Suspect]
     Route: 065
  13. LAMIVUDINE [Suspect]
     Route: 065
  14. VIRAMUNE [Suspect]
     Route: 065
  15. REYATAZ [Suspect]
     Route: 065
  16. ZIAGEN [Suspect]
     Route: 065
  17. VIDEX [Suspect]
     Route: 065
  18. VIREAD [Suspect]
     Route: 065
  19. ZERIT [Suspect]
     Route: 065
  20. VIDEX [Suspect]
     Route: 065

REACTIONS (7)
  - PROGRESSIVE EXTERNAL OPHTHALMOPLEGIA [None]
  - BLOOD LACTIC ACID INCREASED [None]
  - DIPLOPIA [None]
  - DYSPHAGIA [None]
  - EYELID PTOSIS [None]
  - LIPODYSTROPHY ACQUIRED [None]
  - MITOCHONDRIAL TOXICITY [None]
